FAERS Safety Report 9363061 (Version 2)
Quarter: 2013Q3

REPORT INFORMATION
  Report Type: Spontaneous
  Country: US (occurrence: US)
  Receive Date: 20130624
  Receipt Date: 20130826
  Transmission Date: 20140515
  Serious: No
  Sender: FDA-Public Use
  Company Number: US-PFIZER INC-2013185361

PATIENT
  Age: 76 Year
  Sex: Female
  Weight: 81 kg

DRUGS (5)
  1. LATANOPROST [Suspect]
     Indication: GLAUCOMA
     Dosage: 1 GTT, 1X/DAY EACH EYE
     Route: 047
  2. COUMADIN [Concomitant]
     Dosage: UNK
  3. LEVOTHYROXINE [Concomitant]
     Dosage: UNK
  4. NITROFURANTOIN [Concomitant]
     Indication: URINARY TRACT INFECTION
     Dosage: 50 MG, 1X/DAY AT NIGHT
  5. LISINOPRIL [Concomitant]
     Indication: HYPERTENSION
     Dosage: UNK

REACTIONS (3)
  - Extra dose administered [Unknown]
  - Product dropper issue [Unknown]
  - Intraocular pressure decreased [Unknown]
